FAERS Safety Report 16985771 (Version 2)
Quarter: 2019Q4

REPORT INFORMATION
  Report Type: Report from Study
  Country: CO (occurrence: CO)
  Receive Date: 20191101
  Receipt Date: 20191118
  Transmission Date: 20200122
  Serious: Yes (Life-Threatening, Other)
  Sender: FDA-Public Use
  Company Number: PHHY2019CO226862

PATIENT
  Sex: Female

DRUGS (1)
  1. AFINITOR [Suspect]
     Active Substance: EVEROLIMUS
     Indication: BREAST CANCER
     Dosage: 10 MG, QD
     Route: 048

REACTIONS (13)
  - Feeling abnormal [Unknown]
  - Eating disorder [Unknown]
  - Dysgeusia [Unknown]
  - Dry skin [Unknown]
  - Drug intolerance [Unknown]
  - Oral mucosal exfoliation [Unknown]
  - Limb discomfort [Unknown]
  - Weight decreased [Unknown]
  - Metastasis [Unknown]
  - Metastases to spine [Unknown]
  - Mass [Unknown]
  - Skin exfoliation [Unknown]
  - Furuncle [Unknown]
